FAERS Safety Report 7393956-9 (Version None)
Quarter: 2011Q2

REPORT INFORMATION
  Report Type: 
  Country: None (occurrence: None)
  Receive Date: 20110405
  Receipt Date: 20100506
  Transmission Date: 20111010
  Serious: No
  Sender: FDA-Public Use
  Company Number: US-AMGEN-KDL410865

PATIENT
  Sex: Female

DRUGS (4)
  1. FLUOROURACIL [Concomitant]
     Dosage: UNK UNK, UNK
  2. METHOTREXATE [Concomitant]
     Dosage: UNK UNK, UNK
  3. CYCLOPHOSPHAMIDE [Concomitant]
     Dosage: UNK UNK, UNK
  4. NEULASTA [Suspect]
     Indication: CHEMOTHERAPY
     Dosage: 6 MG, UNK

REACTIONS (2)
  - ARTHRALGIA [None]
  - MYALGIA [None]
